FAERS Safety Report 6752292-1 (Version None)
Quarter: 2010Q2

REPORT INFORMATION
  Report Type: 
  Country: None (occurrence: None)
  Receive Date: 20100602
  Receipt Date: 20100525
  Transmission Date: 20101027
  Serious: Yes (Hospitalization)
  Sender: FDA-Public Use
  Company Number: PHHO2010BE08131

PATIENT
  Sex: Male
  Weight: 70 kg

DRUGS (11)
  1. BLINDED ALISKIREN ALI+TAB+CF [Suspect]
     Indication: CARDIAC FAILURE
     Dosage: DOUBLE BLIND
     Route: 048
     Dates: start: 20090911, end: 20100501
  2. BLINDED ENALAPRIL COMP-ENA+ [Suspect]
     Indication: CARDIAC FAILURE
     Dosage: DOUBLE BLIND
     Route: 048
     Dates: start: 20090911, end: 20100501
  3. BLINDED NO TREATMENT RECEIVED NOMED [Suspect]
     Indication: CARDIAC FAILURE
     Dosage: DOUBLE BLIND
     Route: 048
     Dates: start: 20090911, end: 20100501
  4. BLINDED ALISKIREN ALI+TAB+CF [Suspect]
     Dosage: =DOUBLE BLIND
     Route: 048
     Dates: start: 20100517
  5. BLINDED ENALAPRIL COMP-ENA+ [Suspect]
     Dosage: =DOUBLE BLIND
     Route: 048
     Dates: start: 20100517
  6. BLINDED NO TREATMENT RECEIVED NOMED [Suspect]
     Dosage: =DOUBLE BLIND
     Route: 048
     Dates: start: 20100517
  7. ALISKIREN [Suspect]
     Indication: CARDIAC FAILURE
     Dosage: UNK
     Route: 048
  8. COMPARATOR ENALAPRIL [Suspect]
     Indication: CARDIAC FAILURE
     Dosage: UNK
  9. BUMEX [Suspect]
     Indication: CARDIAC FAILURE
     Dosage: 2.5 MG, BID
     Dates: start: 20100401
  10. KREDEX [Concomitant]
  11. ALDACTONE [Concomitant]

REACTIONS (4)
  - ACCIDENTAL OVERDOSE [None]
  - HYPOKALAEMIA [None]
  - HYPOTENSION [None]
  - SYNCOPE [None]
